FAERS Safety Report 5176050-7 (Version None)
Quarter: 2006Q4

REPORT INFORMATION
  Report Type: 
  Country: None (occurrence: None)
  Receive Date: 20061215
  Receipt Date: 20060629
  Transmission Date: 20070319
  Serious: No
  Sender: FDA-Public Use
  Company Number: US-AMGEN-KDL184823

PATIENT
  Sex: Female
  Weight: 87.2 kg

DRUGS (7)
  1. ENBREL [Suspect]
     Indication: RHEUMATOID ARTHRITIS
     Route: 058
     Dates: start: 20060421, end: 20060524
  2. ENBREL [Suspect]
     Route: 058
     Dates: start: 20060101, end: 20060712
  3. METHOTREXATE [Suspect]
     Dates: start: 20060127
  4. PREDNISONE TAB [Suspect]
     Dates: start: 20060127
  5. CALCIUM [Concomitant]
     Dates: start: 20060127
  6. VITAMIN D [Concomitant]
     Dates: start: 20060127
  7. ACTONEL [Concomitant]
     Dates: start: 20060127

REACTIONS (2)
  - INJECTION SITE REACTION [None]
  - PHARYNGITIS STREPTOCOCCAL [None]
